FAERS Safety Report 13688927 (Version 2)
Quarter: 2017Q4

REPORT INFORMATION
  Report Type: Report from Study
  Country: US (occurrence: US)
  Receive Date: 20170626
  Receipt Date: 20171103
  Transmission Date: 20180320
  Serious: Yes (Hospitalization)
  Sender: FDA-Public Use
  Company Number: US-BIOGEN-2017BI00421104

PATIENT
  Age: 56 Year
  Sex: Male

DRUGS (1)
  1. TECFIDERA [Suspect]
     Active Substance: DIMETHYL FUMARATE
     Indication: MULTIPLE SCLEROSIS
     Route: 065
     Dates: start: 20150527

REACTIONS (9)
  - Hemiparesis [Recovered/Resolved]
  - Hyperhidrosis [Recovered/Resolved]
  - Post procedural complication [Recovered/Resolved]
  - Procedural dizziness [Recovered/Resolved]
  - Procedural pain [Recovered/Resolved]
  - Visual impairment [Recovered/Resolved]
  - Weight decreased [Not Recovered/Not Resolved]
  - Cardiac failure [Not Recovered/Not Resolved]
  - Cardiac failure congestive [Not Recovered/Not Resolved]

NARRATIVE: CASE EVENT DATE: 201705
